FAERS Safety Report 19666356 (Version 1)
Quarter: 2021Q3

REPORT INFORMATION
  Report Type: Spontaneous
  Country: US (occurrence: US)
  Receive Date: 20210806
  Receipt Date: 20210806
  Transmission Date: 20211014
  Serious: Yes (Disabling)
  Sender: FDA-Public Use
  Company Number: None

PATIENT
  Age: 31 Year
  Sex: Male

DRUGS (1)
  1. MINOXIDIL. [Suspect]
     Active Substance: MINOXIDIL
     Indication: ALOPECIA
     Dosage: ?          QUANTITY:1 SPRAY(S);?
     Route: 061

REACTIONS (4)
  - Semen volume decreased [None]
  - Loss of libido [None]
  - Erectile dysfunction [None]
  - Semen analysis abnormal [None]

NARRATIVE: CASE EVENT DATE: 20210217
